FAERS Safety Report 11105307 (Version 1)
Quarter: 2015Q2

REPORT INFORMATION
  Report Type: Spontaneous
  Country: TR (occurrence: TR)
  Receive Date: 20150512
  Receipt Date: 20150512
  Transmission Date: 20150821
  Serious: Yes (Other)
  Sender: FDA-Public Use
  Company Number: TR-MYLANLABS-2015M1015528

PATIENT

DRUGS (1)
  1. AMIODARONE [Suspect]
     Active Substance: AMIODARONE
     Indication: ATRIAL FIBRILLATION
     Dosage: 200MG/DAY
     Route: 065

REACTIONS (4)
  - Hypothyroidism [Unknown]
  - Keratopathy [Recovering/Resolving]
  - Skin discolouration [Recovering/Resolving]
  - Hepatotoxicity [Recovered/Resolved]
